FAERS Safety Report 5475876-X (Version None)
Quarter: 2007Q4

REPORT INFORMATION
  Report Type: 
  Country: None (occurrence: None)
  Receive Date: 20071003
  Receipt Date: 20070921
  Transmission Date: 20080405
  Serious: Yes (Hospitalization)
  Sender: FDA-Public Use
  Company Number: FR-BRISTOL-MYERS SQUIBB COMPANY-13922356

PATIENT
  Age: 56 Year
  Sex: Female

DRUGS (9)
  1. ENDOXAN [Suspect]
     Indication: BREAST CANCER
     Route: 042
     Dates: start: 20070301, end: 20070601
  2. TAXOTERE [Suspect]
     Dates: start: 20070501, end: 20070501
  3. TRIFLUCAN [Suspect]
  4. ANAUSIN [Suspect]
  5. ZOFRAN [Suspect]
  6. SOLU-MEDROL [Suspect]
  7. FLUOROURACIL [Suspect]
     Indication: BREAST CANCER
     Dates: start: 20070301, end: 20070601
  8. EPIRUBICIN [Suspect]
     Indication: BREAST CANCER
     Dates: start: 20070301, end: 20070601
  9. RADIOTHERAPY [Suspect]
     Dates: start: 20070716

REACTIONS (3)
  - ECZEMA [None]
  - MUCOCUTANEOUS RASH [None]
  - PALMAR-PLANTAR ERYTHRODYSAESTHESIA SYNDROME [None]
